FAERS Safety Report 21446558 (Version 1)
Quarter: 2022Q4

REPORT INFORMATION
  Report Type: Spontaneous
  Country: US (occurrence: None)
  Receive Date: 20221011
  Receipt Date: 20221011
  Transmission Date: 20230113
  Serious: Yes (Other)
  Sender: FDA-Public Use
  Company Number: None

PATIENT
  Age: 90 Year
  Sex: Male

DRUGS (2)
  1. HEPARIN CALCIUM [Suspect]
     Active Substance: HEPARIN CALCIUM
     Indication: Deep vein thrombosis
     Dosage: SLIDING SCALE IV?
     Route: 042
     Dates: start: 20220906, end: 20220908
  2. HEPARIN CALCIUM [Suspect]
     Active Substance: HEPARIN CALCIUM
     Indication: Pulmonary embolism

REACTIONS (3)
  - Compartment syndrome [None]
  - Haematoma [None]
  - Infusion site extravasation [None]

NARRATIVE: CASE EVENT DATE: 20220908
